FAERS Safety Report 9512001 (Version 1)
Quarter: 2013Q3

REPORT INFORMATION
  Report Type: Spontaneous
  Country: US (occurrence: US)
  Receive Date: 20130910
  Receipt Date: 20130910
  Transmission Date: 20140515
  Serious: Yes (Hospitalization, Other)
  Sender: FDA-Public Use
  Company Number: PHEH2013US018578

PATIENT
  Sex: Female

DRUGS (12)
  1. DIOVAN [Suspect]
     Dosage: UNK UKN, UNK
  2. DIOVAN [Suspect]
     Dosage: 1 DF(320 MG), PER DAY
  3. NEXIUM//ESOMEPRAZOLE SODIUM [Concomitant]
     Dosage: 40 MG, UNK
  4. FUROSEMIDE [Concomitant]
     Dosage: 20 MG, UNK
  5. PRAVASTATIN SODIUM [Concomitant]
     Dosage: 20 MG, UNK
  6. METFORMIN [Concomitant]
     Dosage: 2 DF (1000MG), PER DAY
  7. DILTIAZEM [Concomitant]
     Dosage: 120 MG, UNK
  8. GLIMEPIRID [Concomitant]
     Dosage: 2 DF (2 MG), PER DAY
  9. MULTAQ [Concomitant]
     Dosage: 2 DF (400 MG) PER DAY
  10. BAYER ASPIRIN [Concomitant]
     Dosage: 1 DF (1 MG) PER DAY
  11. B12-VITAMIIN [Concomitant]
     Dosage: 200 MG, UNK
  12. POTASSIUM [Concomitant]
     Dosage: 2 DF (10MG), PER DAY

REACTIONS (6)
  - Pneumonia [Unknown]
  - Pulmonary function test decreased [Unknown]
  - Dyspnoea [Unknown]
  - Cardiac disorder [Unknown]
  - Loss of consciousness [Unknown]
  - Sinusitis [Unknown]
